FAERS Safety Report 11799251 (Version 1)
Quarter: 2015Q4

REPORT INFORMATION
  Report Type: Spontaneous
  Country: US (occurrence: US)
  Receive Date: 20151203
  Receipt Date: 20151203
  Transmission Date: 20160305
  Serious: No
  Sender: FDA-Public Use
  Company Number: US-AMGEN-USASP2015123906

PATIENT
  Sex: Female

DRUGS (1)
  1. REPATHA [Suspect]
     Active Substance: EVOLOCUMAB
     Indication: HYPERCHOLESTEROLAEMIA
     Dosage: 140 MG, Q2WK
     Route: 065
     Dates: start: 20151019

REACTIONS (8)
  - Back pain [Unknown]
  - Nasal dryness [Unknown]
  - Fatigue [Unknown]
  - Adverse drug reaction [Unknown]
  - Nasopharyngitis [Unknown]
  - Myalgia [Unknown]
  - Nasal congestion [Unknown]
  - Muscle twitching [Unknown]

NARRATIVE: CASE EVENT DATE: 2015
